FAERS Safety Report 8812466 (Version 1)
Quarter: 2012Q4

REPORT INFORMATION
  Report Type: 
  Country: US (occurrence: US)
  Receive Date: 20120927
  Receipt Date: 20120927
  Transmission Date: 20130627
  Serious: No
  Sender: FDA-Public Use
  Company Number: US-B.I. PHARMACEUTICALS,INC./RIDGEFIELD-2012-BP-23299BP

PATIENT
  Sex: Female

DRUGS (4)
  1. SPIRIVA [Suspect]
     Indication: EMPHYSEMA
     Dosage: 18 mcg
     Route: 055
     Dates: start: 2009
  2. NEBULIZER [Concomitant]
     Indication: EMPHYSEMA
  3. SYMBICORT [Concomitant]
     Indication: EMPHYSEMA
  4. ALBUTEROL [Concomitant]
     Indication: EMPHYSEMA

REACTIONS (3)
  - Arthritis [Not Recovered/Not Resolved]
  - Vision blurred [Not Recovered/Not Resolved]
  - Neuropathy peripheral [Not Recovered/Not Resolved]
